FAERS Safety Report 8520981-4 (Version None)
Quarter: 2012Q3

REPORT INFORMATION
  Report Type: 
  Country: None (occurrence: None)
  Receive Date: 20120719
  Receipt Date: 20120712
  Transmission Date: 20120928
  Serious: Yes (Hospitalization)
  Sender: FDA-Public Use
  Company Number: IT-BAYER-2012-069756

PATIENT
  Age: 37 Year
  Sex: Female

DRUGS (2)
  1. ASPIRIN [Suspect]
     Indication: INFLUENZA
     Dosage: 1 DF, ONCE
     Route: 048
     Dates: start: 20120423, end: 20120423
  2. ACETAMINOPHEN [Suspect]
     Indication: INFLUENZA
     Dosage: 1 DF, ONCE
     Route: 048
     Dates: start: 20120423, end: 20120423

REACTIONS (6)
  - RASH PUSTULAR [None]
  - EYELID OEDEMA [None]
  - SKIN MACERATION [None]
  - PRURITUS [None]
  - RASH PAPULAR [None]
  - PURULENT DISCHARGE [None]
